FAERS Safety Report 11197316 (Version 1)
Quarter: 2015Q2

REPORT INFORMATION
  Report Type: Spontaneous
  Country: US (occurrence: US)
  Receive Date: 20150617
  Receipt Date: 20150617
  Transmission Date: 20150821
  Serious: Yes (Death, Hospitalization, Other)
  Sender: FDA-Public Use
  Company Number: US-UNITED THERAPEUTICS-UNT-2015-006991

PATIENT
  Age: 48 Year
  Sex: Male
  Weight: 73.47 kg

DRUGS (1)
  1. ORENITRAM [Suspect]
     Active Substance: TREPROSTINIL
     Indication: PULMONARY ARTERIAL HYPERTENSION
     Dosage: 5 MG, Q8H
     Route: 048
     Dates: start: 20150602

REACTIONS (10)
  - Pyrexia [Unknown]
  - Loss of consciousness [Unknown]
  - Myalgia [Unknown]
  - Vomiting [Unknown]
  - Hypotension [Unknown]
  - Myocardial infarction [Fatal]
  - Headache [Unknown]
  - Abdominal discomfort [Unknown]
  - Lethargy [Unknown]
  - Musculoskeletal stiffness [Unknown]

NARRATIVE: CASE EVENT DATE: 20150608
